FAERS Safety Report 9352868 (Version 4)
Quarter: 2013Q3

REPORT INFORMATION
  Report Type: Spontaneous
  Country: US (occurrence: US)
  Receive Date: 20130618
  Receipt Date: 20130930
  Transmission Date: 20140515
  Serious: Yes (Other)
  Sender: FDA-Public Use
  Company Number: US-BIOGENIDEC-2013BI053621

PATIENT
  Age: 43 Year
  Sex: Female

DRUGS (7)
  1. TYSABRI [Suspect]
     Indication: MULTIPLE SCLEROSIS
     Route: 042
     Dates: start: 20130417
  2. AVONEX [Concomitant]
     Indication: MULTIPLE SCLEROSIS
     Route: 030
     Dates: start: 20130317
  3. BENADRYL [Concomitant]
     Indication: DYSPNOEA
  4. BENADRYL [Concomitant]
     Indication: SENSATION OF FOREIGN BODY
  5. BENADRYL [Concomitant]
     Indication: PALPITATIONS
  6. BENADRYL [Concomitant]
     Indication: BACK PAIN
  7. BENADRYL [Concomitant]
     Indication: FLUSHING

REACTIONS (5)
  - Anaphylactic shock [Recovered/Resolved]
  - Back pain [Recovered/Resolved]
  - Vision blurred [Not Recovered/Not Resolved]
  - Sensation of foreign body [Recovered/Resolved]
  - Drug specific antibody present [Unknown]
